FAERS Safety Report 9248744 (Version 2)
Quarter: 2013Q2

REPORT INFORMATION
  Report Type: Report from Study
  Country: JP (occurrence: JP)
  Receive Date: 20130423
  Receipt Date: 20130427
  Transmission Date: 20140414
  Serious: Yes (Hospitalization)
  Sender: FDA-Public Use
  Company Number: JP-ROCHE-1216531

PATIENT
  Age: 66 Year
  Sex: Male

DRUGS (7)
  1. RITUXIMAB [Suspect]
     Indication: NON-HODGKIN^S LYMPHOMA
     Dosage: 750 MG/BODY
     Route: 042
     Dates: start: 20091214, end: 20120308
  2. VINCRISTINE SULFATE [Suspect]
     Indication: NON-HODGKIN^S LYMPHOMA
     Route: 065
  3. DOXORUBICIN HYDROCHLORIDE [Suspect]
     Indication: NON-HODGKIN^S LYMPHOMA
     Route: 065
  4. PREDNISOLONE [Suspect]
     Indication: NON-HODGKIN^S LYMPHOMA
     Route: 065
  5. CYCLOPHOSPHAMIDE [Suspect]
     Indication: NON-HODGKIN^S LYMPHOMA
     Route: 065
  6. MUCOSTA [Concomitant]
     Route: 048
     Dates: start: 20091214
  7. PARIET [Concomitant]
     Indication: GASTRIC ULCER
     Route: 048
     Dates: start: 2009

REACTIONS (1)
  - Lung adenocarcinoma [Recovered/Resolved]
